FAERS Safety Report 19011478 (Version 1)
Quarter: 2021Q1

REPORT INFORMATION
  Report Type: Spontaneous
  Country: US (occurrence: US)
  Receive Date: 20210315
  Receipt Date: 20210315
  Transmission Date: 20210420
  Serious: Yes (Hospitalization)
  Sender: FDA-Public Use
  Company Number: None

PATIENT
  Age: 63 Year
  Sex: Female

DRUGS (14)
  1. AMIODARONE [Concomitant]
     Active Substance: AMIODARONE
  2. CARVEDILOL. [Concomitant]
     Active Substance: CARVEDILOL
  3. EZETIMIBE. [Concomitant]
     Active Substance: EZETIMIBE
  4. ELIQUIS [Concomitant]
     Active Substance: APIXABAN
  5. CLOPIDOGREL [Concomitant]
     Active Substance: CLOPIDOGREL BISULFATE
  6. ATORVASTATIN [Concomitant]
     Active Substance: ATORVASTATIN
  7. BACLOFEN. [Concomitant]
     Active Substance: BACLOFEN
  8. REPATHA [Suspect]
     Active Substance: EVOLOCUMAB
     Indication: ARTERIOSCLEROSIS CORONARY ARTERY
     Route: 058
     Dates: start: 20200203
  9. LOSARTAN POT [Concomitant]
     Active Substance: LOSARTAN POTASSIUM
  10. GLIMEPIRIDE. [Concomitant]
     Active Substance: GLIMEPIRIDE
  11. REPATHA [Suspect]
     Active Substance: EVOLOCUMAB
     Indication: ANGINA PECTORIS
     Route: 058
     Dates: start: 20200203
  12. RANOLAZINE. [Concomitant]
     Active Substance: RANOLAZINE
  13. VASCEPA [Concomitant]
     Active Substance: ICOSAPENT ETHYL
  14. ESCITALOPRAM [Concomitant]
     Active Substance: ESCITALOPRAM OXALATE

REACTIONS (2)
  - Intentional dose omission [None]
  - COVID-19 [None]
